FAERS Safety Report 14184404 (Version 1)
Quarter: 2017Q4

REPORT INFORMATION
  Report Type: Spontaneous
  Country: ZA (occurrence: ZA)
  Receive Date: 20171113
  Receipt Date: 20171113
  Transmission Date: 20180321
  Serious: Yes (Hospitalization, Other)
  Sender: FDA-Public Use
  Company Number: ZA-SA-2017SA218184

PATIENT
  Sex: Male

DRUGS (5)
  1. CHLOROQUINE. [Suspect]
     Active Substance: CHLOROQUINE
     Route: 065
     Dates: start: 2008
  2. PREDNISONE. [Suspect]
     Active Substance: PREDNISONE
     Route: 065
     Dates: start: 2005
  3. PREDNISONE. [Suspect]
     Active Substance: PREDNISONE
     Route: 065
  4. ARAVA [Suspect]
     Active Substance: LEFLUNOMIDE
     Route: 048
     Dates: start: 2011
  5. METHOTREXATE. [Suspect]
     Active Substance: METHOTREXATE
     Route: 065
     Dates: start: 2005

REACTIONS (6)
  - Treatment failure [Unknown]
  - Deformity [Unknown]
  - Peptic ulcer [Unknown]
  - Rheumatoid arthritis [Unknown]
  - Weight bearing difficulty [Unknown]
  - Depression [Unknown]

NARRATIVE: CASE EVENT DATE: 2011
